FAERS Safety Report 16911234 (Version 2)
Quarter: 2019Q4

REPORT INFORMATION
  Report Type: Report from Study
  Country: None (occurrence: SA)
  Receive Date: 20191012
  Receipt Date: 20191023
  Transmission Date: 20200122
  Serious: Yes (Death, Hospitalization)
  Sender: FDA-Public Use
  Company Number: SA-ABBVIE-19K-259-2960724-00

PATIENT
  Sex: Female

DRUGS (1)
  1. DUODOPA [Suspect]
     Active Substance: CARBIDOPA\LEVODOPA
     Indication: PARKINSON^S DISEASE
     Dosage: 7.5 ML/HR ?STRENGTH: 20 MG/ML 5 MG/ML
     Route: 050
     Dates: start: 2016

REACTIONS (3)
  - Blood pressure inadequately controlled [Unknown]
  - Death [Fatal]
  - Sepsis [Unknown]
